FAERS Safety Report 25439096 (Version 1)
Quarter: 2025Q2

REPORT INFORMATION
  Report Type: Spontaneous
  Country: US (occurrence: US)
  Receive Date: 20250616
  Receipt Date: 20250616
  Transmission Date: 20250717
  Serious: No
  Sender: Unknown Manufacturer
  Company Number: US-KINIKSA PHARMACEUTICALS LTD.-2025KPU001561

PATIENT
  Sex: Female

DRUGS (3)
  1. ARCALYST [Suspect]
     Active Substance: RILONACEPT
     Indication: Product used for unknown indication
     Dates: start: 2020
  2. Allergy relief medicine [Concomitant]
     Indication: Hypersensitivity
  3. UNSPECIFIED INGREDIENT [Concomitant]
     Active Substance: UNSPECIFIED INGREDIENT
     Indication: Product used for unknown indication

REACTIONS (1)
  - Seasonal allergy [Not Recovered/Not Resolved]
